FAERS Safety Report 9797600 (Version 2)
Quarter: 2014Q1

REPORT INFORMATION
  Report Type: Spontaneous
  Country: US (occurrence: US)
  Receive Date: 20140106
  Receipt Date: 20140204
  Transmission Date: 20141002
  Serious: Yes (Hospitalization, Other)
  Sender: FDA-Public Use
  Company Number: US-MERCK-1312USA012107

PATIENT
  Age: 37 Year
  Sex: Female

DRUGS (3)
  1. ASMANEX TWISTHALER [Suspect]
     Indication: ASTHMA
     Dosage: 2 PUFFS ONCE A DAY
     Route: 055
     Dates: start: 201308
  2. SINGULAIR [Concomitant]
  3. PREDNISONE [Concomitant]

REACTIONS (3)
  - Cholecystectomy [Recovering/Resolving]
  - Drug dose omission [Unknown]
  - Product quality issue [Unknown]
